FAERS Safety Report 4960828-6 (Version None)
Quarter: 2006Q2

REPORT INFORMATION
  Report Type: 
  Country: None (occurrence: None)
  Receive Date: 20060403
  Receipt Date: 20051025
  Transmission Date: 20061013
  Serious: Yes (Hospitalization, Disabling)
  Sender: FDA-Public Use
  Company Number: US-ROCHE-422740

PATIENT
  Age: 18 Year
  Sex: Female
  Weight: 63.5 kg

DRUGS (2)
  1. ACCUTANE [Suspect]
     Indication: ACNE
     Route: 048
     Dates: start: 19991011, end: 20000615
  2. LORTAB [Concomitant]
     Indication: PAIN
     Dates: start: 20041209

REACTIONS (43)
  - ABORTION INDUCED [None]
  - ABSCESS [None]
  - ANAEMIA [None]
  - ANHEDONIA [None]
  - ANTINUCLEAR ANTIBODY POSITIVE [None]
  - ANXIETY [None]
  - APPENDICECTOMY [None]
  - ARTHRALGIA [None]
  - ARTHROPOD BITE [None]
  - ASTHMA [None]
  - ATELECTASIS [None]
  - COLITIS [None]
  - COLITIS ULCERATIVE [None]
  - CYSTITIS [None]
  - DRUG EXPOSURE DURING PREGNANCY [None]
  - DYSPEPSIA [None]
  - EPISTAXIS [None]
  - GASTROINTESTINAL DISORDER [None]
  - GASTROOESOPHAGEAL REFLUX DISEASE [None]
  - GLOMERULONEPHRITIS PROLIFERATIVE [None]
  - HYPERTENSION [None]
  - HYPOAESTHESIA [None]
  - INFLAMMATORY BOWEL DISEASE [None]
  - INTESTINAL HAEMORRHAGE [None]
  - JOINT SPRAIN [None]
  - LARYNGITIS [None]
  - LIP ULCERATION [None]
  - MOVEMENT DISORDER [None]
  - MUSCULOSKELETAL PAIN [None]
  - NEPHROPATHY [None]
  - OTITIS EXTERNA [None]
  - PAIN [None]
  - PHARYNGITIS [None]
  - PHARYNGOLARYNGEAL PAIN [None]
  - PNEUMONIA [None]
  - PRE-ECLAMPSIA [None]
  - PREGNANCY [None]
  - SINUSITIS [None]
  - STREPTOCOCCAL INFECTION [None]
  - SWELLING [None]
  - UPPER RESPIRATORY TRACT INFECTION [None]
  - URINARY RETENTION [None]
  - URINARY TRACT INFECTION [None]
